FAERS Safety Report 5392816-2 (Version None)
Quarter: 2007Q3

REPORT INFORMATION
  Report Type: 
  Country: None (occurrence: None)
  Receive Date: 20070720
  Receipt Date: 20070709
  Transmission Date: 20080115
  Serious: Yes (Other)
  Sender: FDA-Public Use
  Company Number: US-PFIZER INC-2007056170

PATIENT
  Sex: Male
  Weight: 77 kg

DRUGS (1)
  1. GEODON [Suspect]
     Indication: SCHIZOPHRENIA
     Dates: start: 20070308, end: 20070701

REACTIONS (3)
  - EXTRAPYRAMIDAL DISORDER [None]
  - IMPAIRED DRIVING ABILITY [None]
  - TORTICOLLIS [None]
